FAERS Safety Report 10182744 (Version 1)
Quarter: 2014Q2

REPORT INFORMATION
  Report Type: Spontaneous
  Country: US (occurrence: None)
  Receive Date: 20140519
  Receipt Date: 20140519
  Transmission Date: 20141212
  Serious: Yes (Other)
  Sender: FDA-Public Use
  Company Number: None

PATIENT
  Age: 57 Year
  Sex: Female
  Weight: 78.93 kg

DRUGS (1)
  1. BYDUREON [Suspect]
     Indication: TYPE 2 DIABETES MELLITUS
     Dates: start: 20140328, end: 20140425

REACTIONS (9)
  - Nausea [None]
  - Dizziness [None]
  - Vomiting [None]
  - Abdominal pain upper [None]
  - Constipation [None]
  - Pruritus [None]
  - Abnormal dreams [None]
  - Injection site mass [None]
  - Blood glucose decreased [None]
